FAERS Safety Report 8722553 (Version 3)
Quarter: 2012Q4

REPORT INFORMATION
  Report Type: 
  Country: BR (occurrence: BR)
  Receive Date: 20120814
  Receipt Date: 20121102
  Transmission Date: 20130627
  Serious: Yes (Other)
  Sender: FDA-Public Use
  Company Number: BR-PFIZER INC-2012193478

PATIENT
  Age: 47 Year
  Sex: Female
  Weight: 71 kg

DRUGS (4)
  1. LIPITOR [Suspect]
     Indication: PROPHYLAXIS
     Dosage: 10 mg, UNK
     Route: 048
     Dates: start: 19990808
  2. CARDIZEM [Concomitant]
     Indication: BLOOD PRESSURE
     Dosage: 30 mg, UNK
     Dates: start: 20110808
  3. LEUKERAN [Concomitant]
     Indication: RHEUMATISM
     Dosage: 2 mg, UNK
     Dates: start: 20090808
  4. TRENTAL [Concomitant]
     Indication: ANTICOAGULANT THERAPY
     Dosage: 400 mg, UNK
     Dates: start: 20020808

REACTIONS (3)
  - Breast disorder female [Unknown]
  - Scleroderma [Unknown]
  - Chest pain [Unknown]
